FAERS Safety Report 12235873 (Version 3)
Quarter: 2016Q2

REPORT INFORMATION
  Report Type: Spontaneous
  Country: US (occurrence: US)
  Receive Date: 20160404
  Receipt Date: 20160608
  Transmission Date: 20160815
  Serious: Yes (Hospitalization, Other)
  Sender: FDA-Public Use
  Company Number: US-BAYER-2016-058050

PATIENT
  Age: 65 Year
  Sex: Male

DRUGS (13)
  1. LINAGLIPTIN [Concomitant]
     Active Substance: LINAGLIPTIN
  2. TICAGRELOR [Concomitant]
     Active Substance: TICAGRELOR
  3. ATORVASTATIN CALCIUM. [Concomitant]
     Active Substance: ATORVASTATIN CALCIUM
  4. METOPROLOL SUCCINATE. [Concomitant]
     Active Substance: METOPROLOL SUCCINATE
     Dosage: UNK
     Dates: end: 2016
  5. SPIRONOLACTONE. [Concomitant]
     Active Substance: SPIRONOLACTONE
  6. FUROSEMIDE. [Concomitant]
     Active Substance: FUROSEMIDE
  7. DIGOXIN. [Concomitant]
     Active Substance: DIGOXIN
  8. FLUOXETINE HYDROCHLORIDE. [Concomitant]
     Active Substance: FLUOXETINE HYDROCHLORIDE
     Indication: DEPRESSION
  9. FLUOXETINE HYDROCHLORIDE. [Concomitant]
     Active Substance: FLUOXETINE HYDROCHLORIDE
     Indication: DEPRESSION
     Dosage: UNK
     Dates: start: 20160418
  10. LASIX [Concomitant]
     Active Substance: FUROSEMIDE
     Dosage: 80 MG, BID
  11. BAYER LOW DOSE [Suspect]
     Active Substance: ASPIRIN
     Dosage: UNK
  12. WARFARIN SODIUM. [Concomitant]
     Active Substance: WARFARIN SODIUM
     Dosage: UNK
     Dates: end: 20160219
  13. LISINOPRIL. [Concomitant]
     Active Substance: LISINOPRIL
     Dosage: UNK
     Dates: end: 2016

REACTIONS (23)
  - Sepsis [None]
  - Weight decreased [Unknown]
  - Haemoglobin decreased [Recovered/Resolved]
  - Hypotension [Recovering/Resolving]
  - Body temperature decreased [Recovering/Resolving]
  - Decubitus ulcer [Recovering/Resolving]
  - Internal haemorrhage [Recovered/Resolved]
  - Nephrolithiasis [Recovered/Resolved]
  - Clostridium difficile infection [None]
  - Urine output decreased [Recovering/Resolving]
  - Skin oedema [Recovering/Resolving]
  - Diarrhoea [None]
  - Thrombosis [Unknown]
  - Haematoma [Unknown]
  - Hypotension [None]
  - Peritoneal haematoma [Recovering/Resolving]
  - Joint injury [None]
  - Dysphagia [Not Recovered/Not Resolved]
  - Peritoneal abscess [Recovering/Resolving]
  - Dyspnoea [None]
  - Clostridium difficile infection [None]
  - Dysgeusia [Unknown]
  - Obstruction [None]

NARRATIVE: CASE EVENT DATE: 2016
